FAERS Safety Report 11279329 (Version 1)
Quarter: 2015Q3

REPORT INFORMATION
  Report Type: Report from Study
  Country: CA (occurrence: CA)
  Receive Date: 20150717
  Receipt Date: 20150717
  Transmission Date: 20151125
  Serious: Yes (Hospitalization, Other)
  Sender: FDA-Public Use
  Company Number: CA-ABBVIE-15K-028-1425389-00

PATIENT
  Sex: Female
  Weight: 55.39 kg

DRUGS (1)
  1. HUMIRA [Suspect]
     Active Substance: ADALIMUMAB
     Indication: ANKYLOSING SPONDYLITIS
     Route: 058
     Dates: start: 20080829, end: 20150612

REACTIONS (2)
  - Ulcer haemorrhage [Recovered/Resolved]
  - Endometrial cancer [Unknown]

NARRATIVE: CASE EVENT DATE: 2015
